FAERS Safety Report 11168022 (Version 1)
Quarter: 2015Q2

REPORT INFORMATION
  Report Type: Spontaneous
  Country: US (occurrence: US)
  Receive Date: 20150605
  Receipt Date: 20150605
  Transmission Date: 20150821
  Serious: Yes (Death)
  Sender: FDA-Public Use
  Company Number: US-LPDUSPRD-20150378

PATIENT
  Age: 77 Year
  Sex: Male

DRUGS (9)
  1. VENOFER [Suspect]
     Active Substance: IRON SUCROSE
     Dosage: 50 MG ONCE PER WEEK
     Route: 042
     Dates: start: 20150504
  2. PORCINE [Concomitant]
     Dosage: DOSE NOT PROVIDED
  3. EPOETIN ALFA [Concomitant]
     Active Substance: ERYTHROPOIETIN
     Dosage: DOSE NOT PROVIDED
  4. 2008K2 HEMODIALYSIS MACHINE [Concomitant]
     Dosage: DOSE NOT PROVIDED
  5. COMBISET [Concomitant]
  6. GRANUFLO [Concomitant]
     Active Substance: ACETIC ACID\SODIUM ACETATE
     Dosage: DOSE NOT PROVIDED
  7. BIOCARBONATE [Concomitant]
     Dosage: DOSE NOT PROVIDED
  8. OPTIFLUX DIALYZER [Concomitant]
     Active Substance: DEVICE
  9. SALINE 0.9% [Concomitant]
     Active Substance: SODIUM CHLORIDE
     Dosage: DOSE NOT PROVIDED

REACTIONS (1)
  - Cardiac arrest [Fatal]

NARRATIVE: CASE EVENT DATE: 20150504
